FAERS Safety Report 19943510 (Version 1)
Quarter: 2021Q4

REPORT INFORMATION
  Report Type: Spontaneous
  Country: IT (occurrence: IT)
  Receive Date: 20211011
  Receipt Date: 20211011
  Transmission Date: 20220303
  Serious: Yes (Congenital Anomaly)
  Sender: FDA-Public Use
  Company Number: IT-TRIS PHARMA, INC.-21IT009906

PATIENT

DRUGS (1)
  1. LEVETIRACETAM [Suspect]
     Active Substance: LEVETIRACETAM
     Indication: Maternal exposure during pregnancy
     Dosage: UNK
     Route: 015

REACTIONS (2)
  - Congenital renal disorder [Unknown]
  - Foetal exposure during pregnancy [Unknown]
